FAERS Safety Report 7836637-7 (Version None)
Quarter: 2011Q4

REPORT INFORMATION
  Report Type: 
  Country: None (occurrence: None)
  Receive Date: 20111024
  Receipt Date: 20110216
  Transmission Date: 20120403
  Serious: No
  Sender: FDA-Public Use
  Company Number: US-ABBOTT-11P-163-0706506-00

PATIENT
  Sex: Female
  Weight: 105.78 kg

DRUGS (4)
  1. LORATADINE [Concomitant]
     Indication: HYPERSENSITIVITY
  2. GLUCOPHAGE [Concomitant]
     Indication: POLYCYSTIC OVARIES
  3. LUPRON DEPOT [Suspect]
     Indication: ENDOMETRIOSIS
     Dates: start: 20110101
  4. VITAMIN B COMPLEX CAP [Concomitant]
     Indication: VITAMIN SUPPLEMENTATION

REACTIONS (2)
  - BACK PAIN [None]
  - ACCIDENT [None]
